FAERS Safety Report 15898964 (Version 1)
Quarter: 2019Q1

REPORT INFORMATION
  Report Type: Report from Study
  Country: None (occurrence: FI)
  Receive Date: 20190201
  Receipt Date: 20190201
  Transmission Date: 20190417
  Serious: Yes (Hospitalization)
  Sender: FDA-Public Use
  Company Number: FI-ABBVIE-18S-055-2597977-00

PATIENT
  Age: 76 Year
  Sex: Male

DRUGS (2)
  1. DUODOPA [Suspect]
     Active Substance: CARBIDOPA\LEVODOPA
     Route: 050
     Dates: start: 20190111
  2. DUODOPA [Suspect]
     Active Substance: CARBIDOPA\LEVODOPA
     Indication: PARKINSON^S DISEASE
     Dosage: MD 11 ML; CD 4.9 ML/H; ED 1 ML.
     Route: 050
     Dates: start: 201610, end: 201812

REACTIONS (6)
  - Device expulsion [Recovered/Resolved]
  - Device loosening [Unknown]
  - Clostridium difficile colitis [Recovering/Resolving]
  - Device expulsion [Unknown]
  - Clostridium difficile colitis [Recovering/Resolving]
  - Device issue [Unknown]

NARRATIVE: CASE EVENT DATE: 2018
